FAERS Safety Report 4506579-3 (Version None)
Quarter: 2004Q4

REPORT INFORMATION
  Report Type: 
  Country: None (occurrence: None)
  Receive Date: 20041122
  Receipt Date: 20041116
  Transmission Date: 20050328
  Serious: Yes (Other)
  Sender: FDA-Public Use
  Company Number: PHBS2004NL15428

PATIENT
  Age: 9 Year
  Sex: Female

DRUGS (1)
  1. LAMISIL [Suspect]
     Indication: NAIL TINEA
     Dosage: 125 MG, QD
     Route: 048
     Dates: start: 20040930, end: 20041016

REACTIONS (2)
  - MENTAL IMPAIRMENT [None]
  - NERVOUS SYSTEM DISORDER [None]
